FAERS Safety Report 8966137 (Version 2)
Quarter: 2013Q3

REPORT INFORMATION
  Report Type: Spontaneous
  Country: BR (occurrence: BR)
  Receive Date: 20121217
  Receipt Date: 20130729
  Transmission Date: 20140515
  Serious: Yes (Other)
  Sender: FDA-Public Use
  Company Number: BR-AMGEN-BRASP2012080303

PATIENT
  Age: 52 Year
  Sex: Female
  Weight: 61 kg

DRUGS (8)
  1. ENBREL [Suspect]
     Indication: RHEUMATOID ARTHRITIS
     Dosage: UNK
     Route: 065
     Dates: start: 201004, end: 201110
  2. ENBREL [Suspect]
     Dosage: 50 MG, ONCE WEEKLY
     Route: 058
     Dates: start: 201004, end: 20130628
  3. MICARDIS [Concomitant]
     Indication: HYPERTENSION
     Dosage: 40.12 MG, (1 TABLET PER DAY)
  4. MICARDIS [Concomitant]
     Dosage: 40.12 MG, (2 TABLETS ON DAY OF APPLICATION)
  5. TECTA [Concomitant]
     Indication: ABDOMINAL DISCOMFORT
     Dosage: 40 MG, 2X/DAY (EVERY 12 HOURS)
  6. DEFLAZACORT [Concomitant]
     Indication: HYPERSENSITIVITY
     Dosage: 20 MG, 1X/DAY
  7. DEFLAZACORT [Concomitant]
     Indication: RHEUMATOID ARTHRITIS
     Dosage: 30 MG, UNK
  8. PROFLAM [Concomitant]
     Indication: RHEUMATOID ARTHRITIS
     Dosage: UNK

REACTIONS (13)
  - Skin exfoliation [Unknown]
  - Skin disorder [Unknown]
  - Hypersensitivity [Unknown]
  - Gastrooesophageal reflux disease [Unknown]
  - Gastritis [Unknown]
  - Anaphylactic reaction [Unknown]
  - Blood pressure fluctuation [Unknown]
  - Abdominal pain upper [Unknown]
  - Dizziness [Unknown]
  - Headache [Unknown]
  - Injection site erythema [Unknown]
  - Injection site pruritus [Unknown]
  - Injection site swelling [Unknown]
